FAERS Safety Report 24444947 (Version 2)
Quarter: 2024Q4

REPORT INFORMATION
  Report Type: Report from Study
  Country: US (occurrence: US)
  Receive Date: 20241016
  Receipt Date: 20241017
  Transmission Date: 20250115
  Serious: No
  Sender: ROCHE
  Company Number: US-ROCHE-3010883

PATIENT
  Age: 64 Year
  Sex: Female
  Weight: 80.74 kg

DRUGS (37)
  1. RITUXAN [Suspect]
     Active Substance: RITUXIMAB
     Indication: Rheumatoid arthritis
     Route: 041
  2. RITUXAN [Suspect]
     Active Substance: RITUXIMAB
     Indication: Rheumatoid arthritis
     Route: 041
  3. ALBUTEROL SULFATE [Concomitant]
     Active Substance: ALBUTEROL SULFATE
     Indication: Dyspnoea
     Dates: start: 20200731
  4. ALENDRONATE [Concomitant]
     Active Substance: ALENDRONATE SODIUM
     Dates: start: 20220404
  5. ALPRAZOLAM [Concomitant]
     Active Substance: ALPRAZOLAM
     Dosage: YES
     Dates: start: 20220714
  6. AMLODIPINE [Concomitant]
     Active Substance: AMLODIPINE BESYLATE
     Route: 048
     Dates: start: 20210809
  7. AMLODIPINE [Concomitant]
     Active Substance: AMLODIPINE BESYLATE
     Route: 048
     Dates: start: 20220906
  8. ARNUITY ELLIPTA [Concomitant]
     Active Substance: FLUTICASONE FUROATE
     Dates: start: 20210629
  9. BENZONATATE [Concomitant]
     Active Substance: BENZONATATE
     Dates: start: 20220421
  10. BENZONATATE [Concomitant]
     Active Substance: BENZONATATE
     Dates: start: 20210618
  11. BUDESONIDE [Concomitant]
     Active Substance: BUDESONIDE
     Dates: start: 20200731
  12. BUDESONIDE [Concomitant]
     Active Substance: BUDESONIDE
     Dates: start: 20201202
  13. CALCIUM\VITAMIN D [Concomitant]
     Active Substance: CALCIUM\VITAMIN D
     Dates: start: 20190609
  14. CHOLECALCIFEROL [Concomitant]
     Active Substance: CHOLECALCIFEROL
     Route: 048
     Dates: start: 20210413
  15. FLUTICASONE PROPIONATE [Concomitant]
     Active Substance: FLUTICASONE PROPIONATE
     Dates: start: 20190730
  16. FLUOROURACIL [Concomitant]
     Active Substance: FLUOROURACIL
     Route: 061
     Dates: start: 20190930
  17. GABAPENTIN [Concomitant]
     Active Substance: GABAPENTIN
     Route: 048
     Dates: start: 20210312
  18. HYDROCODONE [Concomitant]
     Active Substance: HYDROCODONE
     Dates: start: 20210406
  19. HYDROCODONE [Concomitant]
     Active Substance: HYDROCODONE
     Dosage: 325MG/15ML
     Dates: start: 20210516
  20. HOMATROPINE METHYLBROMIDE\HYDROCODONE BITARTRATE [Concomitant]
     Active Substance: HOMATROPINE METHYLBROMIDE\HYDROCODONE BITARTRATE
     Route: 048
     Dates: start: 20220806
  21. HYDROXYCHLOROQUINE [Concomitant]
     Active Substance: HYDROXYCHLOROQUINE
     Dates: start: 20221006
  22. LEVOCETIRIZINE [Concomitant]
     Active Substance: LEVOCETIRIZINE
     Dates: start: 20210205
  23. MELOXICAM [Concomitant]
     Active Substance: MELOXICAM
     Route: 048
     Dates: start: 20221006
  24. MUPIROCIN [Concomitant]
     Active Substance: MUPIROCIN
     Route: 061
     Dates: start: 20191008
  25. PHENDIMETRAZINE TARTRATE [Concomitant]
     Active Substance: PHENDIMETRAZINE TARTRATE
     Route: 048
     Dates: start: 20220917
  26. PHENTERMINE [Concomitant]
     Active Substance: PHENTERMINE\PHENTERMINE HYDROCHLORIDE
     Route: 048
     Dates: start: 20210822
  27. PHENTERMINE [Concomitant]
     Active Substance: PHENTERMINE\PHENTERMINE HYDROCHLORIDE
     Route: 048
     Dates: start: 20220504
  28. PREGABALIN [Concomitant]
     Active Substance: PREGABALIN
     Dates: start: 20221005
  29. RITUXAN [Concomitant]
     Active Substance: RITUXIMAB
     Dosage: 10 MG/ML
     Route: 042
     Dates: start: 20190419
  30. SYMBICORT [Concomitant]
     Active Substance: BUDESONIDE\FORMOTEROL FUMARATE DIHYDRATE
     Dates: start: 20200814
  31. TYLENOL [Concomitant]
     Active Substance: ACETAMINOPHEN
     Dosage: FREQUENCY TEXT:EVERY 4- 6 HOURS
     Route: 048
  32. VITAMIN D2 [Concomitant]
     Active Substance: ERGOCALCIFEROL
     Dosage: 1250 MCG
     Route: 048
  33. XOFLUZA [Concomitant]
     Active Substance: BALOXAVIR MARBOXIL
  34. FLUBLOK QUADRIVALENT NOS [Concomitant]
     Active Substance: INFLUENZA VIRUS VACCINE
     Route: 030
     Dates: start: 20191014
  35. PNEUMOCOCCAL VACCINE POLYVALENT [Concomitant]
     Active Substance: PNEUMOCOCCAL VACCINE POLYVALENT
     Route: 042
     Dates: start: 20151229
  36. PNEUMOCOCCAL VACCINE POLYVALENT [Concomitant]
     Active Substance: PNEUMOCOCCAL VACCINE POLYVALENT
     Route: 030
     Dates: start: 20111011
  37. MODERNA COVID-19 VACCINE [Concomitant]
     Active Substance: ELASOMERAN
     Dates: start: 20210302

REACTIONS (2)
  - Off label use [Unknown]
  - No adverse event [Unknown]
